FAERS Safety Report 8435399-2 (Version None)
Quarter: 2012Q2

REPORT INFORMATION
  Report Type: 
  Country: None (occurrence: None)
  Receive Date: 20120614
  Receipt Date: 20120612
  Transmission Date: 20120825
  Serious: Yes (Hospitalization)
  Sender: FDA-Public Use
  Company Number: PHHO2012GB008420

PATIENT
  Sex: Female

DRUGS (10)
  1. VENTOLIN [Concomitant]
     Indication: ASTHMA
  2. TRAMADOL HCL [Concomitant]
     Indication: ANTIBIOTIC THERAPY
     Dosage: 50 MG, UNK
     Route: 048
     Dates: start: 20120518, end: 20120518
  3. TRAMADOL HCL [Concomitant]
     Dosage: 100 MG, PRN
     Route: 048
     Dates: start: 20120519
  4. SIMVASTATIN [Concomitant]
     Indication: HYPERCHOLESTEROLAEMIA
  5. NEFOPAM [Concomitant]
     Dosage: 30 MG, UNK
     Route: 048
     Dates: start: 20120519
  6. ACETAMINOPHEN [Concomitant]
     Dosage: 4 G, UNK
     Route: 048
     Dates: start: 20120519, end: 20120526
  7. ACETAMINOPHEN [Concomitant]
     Indication: ANTIBIOTIC THERAPY
     Dosage: 1 G, UNK
     Route: 048
     Dates: start: 20120518, end: 20120518
  8. LEVOTHYROXINE SODIUM [Concomitant]
     Indication: HYPOTHYROIDISM
  9. LETROZOLE [Suspect]
     Indication: BREAST CANCER
     Dosage: 2.5 MG, DAILY
     Route: 048
     Dates: start: 20110725
  10. NEFOPAM [Concomitant]
     Indication: ANTIBIOTIC THERAPY
     Dosage: 60 MG, UNK
     Route: 048
     Dates: start: 20120518, end: 20120518

REACTIONS (3)
  - NEPHROLITHIASIS [None]
  - RENAL COLIC [None]
  - DIARRHOEA [None]
